FAERS Safety Report 16127121 (Version 1)
Quarter: 2019Q1

REPORT INFORMATION
  Report Type: Spontaneous
  Country: FR (occurrence: FR)
  Receive Date: 20190328
  Receipt Date: 20190328
  Transmission Date: 20190418
  Serious: Yes (Hospitalization)
  Sender: FDA-Public Use
  Company Number: FR-TEVA-2019-FR-1029440

PATIENT
  Age: 78 Year
  Sex: Male
  Weight: 82 kg

DRUGS (10)
  1. OFLOCET 200 MG, COMPRIM? PELLICUL? S?CABLE [Concomitant]
     Active Substance: OFLOXACIN
     Indication: SEPSIS
     Dosage: 600 MILLIGRAM DAILY;
     Route: 048
     Dates: start: 20190201
  2. NOVORAPID [Concomitant]
     Active Substance: INSULIN ASPART
     Indication: INSULIN-REQUIRING TYPE 2 DIABETES MELLITUS
     Route: 058
  3. TAHOR [Concomitant]
     Active Substance: ATORVASTATIN CALCIUM
     Indication: PRODUCT USED FOR UNKNOWN INDICATION
     Route: 048
  4. AXEPIM 2 G, POUDRE POUR USAGE PARENT?RAL [Suspect]
     Active Substance: CEFEPIME HYDROCHLORIDE
     Indication: SEPSIS
     Route: 042
     Dates: start: 20190123, end: 20190214
  5. SERESTA 10 MG, COMPRIM? [Concomitant]
     Active Substance: OXAZEPAM
     Indication: PRODUCT USED FOR UNKNOWN INDICATION
     Route: 048
  6. NORSET 15 MG, COMPRIM? ORODISPERSIBLE [Concomitant]
     Indication: PRODUCT USED FOR UNKNOWN INDICATION
     Route: 048
  7. LOVENOX [Concomitant]
     Active Substance: ENOXAPARIN SODIUM
     Indication: PRODUCT USED FOR UNKNOWN INDICATION
     Route: 058
     Dates: start: 20190124, end: 20190208
  8. VANCOMYCINE [Suspect]
     Active Substance: VANCOMYCIN
     Indication: SEPSIS
     Route: 041
     Dates: start: 20190123, end: 20190129
  9. ABASAGLAR [Concomitant]
     Active Substance: INSULIN GLARGINE
     Indication: INSULIN-REQUIRING TYPE 2 DIABETES MELLITUS
     Route: 058
  10. PERFALGAN [Concomitant]
     Active Substance: ACETAMINOPHEN
     Indication: PAIN
     Route: 042

REACTIONS (1)
  - Acute kidney injury [Not Recovered/Not Resolved]

NARRATIVE: CASE EVENT DATE: 20190203
